FAERS Safety Report 10250289 (Version 1)
Quarter: 2014Q2

REPORT INFORMATION
  Report Type: Spontaneous
  Country: US (occurrence: US)
  Receive Date: 20140620
  Receipt Date: 20140620
  Transmission Date: 20141212
  Serious: Yes (Other)
  Sender: FDA-Public Use
  Company Number: US-JNJFOC-20140610917

PATIENT
  Age: 5 Decade
  Sex: Male

DRUGS (3)
  1. XARELTO [Suspect]
     Indication: THROMBOSIS PROPHYLAXIS
     Route: 048
     Dates: start: 2014, end: 201406
  2. XARELTO [Suspect]
     Indication: KNEE OPERATION
     Route: 048
     Dates: start: 2014, end: 201406
  3. LISINOPRIL [Concomitant]
     Route: 065

REACTIONS (3)
  - Thrombosis [Unknown]
  - Incorrect dose administered [Unknown]
  - Arthralgia [Unknown]
